FAERS Safety Report 16306184 (Version 2)
Quarter: 2021Q2

REPORT INFORMATION
  Report Type: Spontaneous
  Country: US (occurrence: US)
  Receive Date: 20190513
  Receipt Date: 20210518
  Transmission Date: 20210716
  Serious: Yes (Hospitalization, Other)
  Sender: FDA-Public Use
  Company Number: US-ASTRAZENECA-2019SE64125

PATIENT
  Age: 49 Year
  Sex: Male

DRUGS (36)
  1. NEXIUM 24HR [Suspect]
     Active Substance: ESOMEPRAZOLE MAGNESIUM
     Indication: DYSPEPSIA
     Route: 048
     Dates: start: 2014, end: 2017
  2. HYDROCHLOROTHIAZIDE. [Concomitant]
     Active Substance: HYDROCHLOROTHIAZIDE
     Indication: OEDEMA
     Dates: start: 2015, end: 2016
  3. ISENTRESS [Concomitant]
     Active Substance: RALTEGRAVIR POTASSIUM
  4. RANITIDINE. [Concomitant]
     Active Substance: RANITIDINE
  5. LAMIVUDINE. [Concomitant]
     Active Substance: LAMIVUDINE
  6. GABAPENTIN. [Concomitant]
     Active Substance: GABAPENTIN
  7. COLCHICINE. [Concomitant]
     Active Substance: COLCHICINE
  8. VALGANCICLOV [Concomitant]
  9. MOXIFLOXACIN. [Concomitant]
     Active Substance: MOXIFLOXACIN
  10. KETOROLAC [Concomitant]
     Active Substance: KETOROLAC TROMETHAMINE
  11. BACLOFEN. [Concomitant]
     Active Substance: BACLOFEN
  12. OMEPRAZOLE. [Suspect]
     Active Substance: OMEPRAZOLE
     Indication: DYSPEPSIA
     Route: 065
     Dates: end: 2017
  13. SUSTIVA [Concomitant]
     Active Substance: EFAVIRENZ
  14. NORTRIPTYLIN [Concomitant]
     Active Substance: NORTRIPTYLINE
  15. NEXIUM 24HR [Suspect]
     Active Substance: ESOMEPRAZOLE MAGNESIUM
     Indication: DYSPEPSIA
     Route: 048
     Dates: start: 201101, end: 201205
  16. AMOXICILLIN. [Concomitant]
     Active Substance: AMOXICILLIN
     Indication: INFECTION
     Dates: start: 2018
  17. TRIAMCINOLON [Concomitant]
  18. DAPSONE. [Concomitant]
     Active Substance: DAPSONE
  19. METHYLPRED [Concomitant]
     Active Substance: METHYLPREDNISOLONE
  20. NORTRIPTYLIN [Concomitant]
     Active Substance: NORTRIPTYLINE
  21. KETAMINE [Concomitant]
     Active Substance: KETAMINE
  22. NEXIUM [Suspect]
     Active Substance: ESOMEPRAZOLE MAGNESIUM
     Indication: DYSPEPSIA
     Route: 048
     Dates: end: 2017
  23. NEXIUM 24HR [Suspect]
     Active Substance: ESOMEPRAZOLE MAGNESIUM
     Indication: GASTROOESOPHAGEAL REFLUX DISEASE
     Route: 048
     Dates: start: 2014, end: 2017
  24. PANTOPRAZOLE [Suspect]
     Active Substance: PANTOPRAZOLE
     Indication: GASTROOESOPHAGEAL REFLUX DISEASE
     Route: 065
     Dates: end: 2017
  25. ABACAVIR. [Concomitant]
     Active Substance: ABACAVIR
     Indication: HIV INFECTION
     Dates: start: 2015
  26. RENVELA [Concomitant]
     Active Substance: SEVELAMER CARBONATE
  27. NEXIUM [Suspect]
     Active Substance: ESOMEPRAZOLE MAGNESIUM
     Indication: DYSPEPSIA
     Route: 048
     Dates: start: 201101, end: 201205
  28. TEMAZEPAM. [Concomitant]
     Active Substance: TEMAZEPAM
  29. TIVICAY [Concomitant]
     Active Substance: DOLUTEGRAVIR SODIUM
  30. NEXIUM [Suspect]
     Active Substance: ESOMEPRAZOLE MAGNESIUM
     Indication: GASTROOESOPHAGEAL REFLUX DISEASE
     Route: 048
     Dates: start: 201101, end: 201205
  31. NEXIUM [Suspect]
     Active Substance: ESOMEPRAZOLE MAGNESIUM
     Indication: GASTROOESOPHAGEAL REFLUX DISEASE
     Route: 048
     Dates: end: 2017
  32. NEXIUM 24HR [Suspect]
     Active Substance: ESOMEPRAZOLE MAGNESIUM
     Indication: GASTROOESOPHAGEAL REFLUX DISEASE
     Route: 048
     Dates: start: 201101, end: 201205
  33. OMEPRAZOLE. [Suspect]
     Active Substance: OMEPRAZOLE
     Indication: GASTROOESOPHAGEAL REFLUX DISEASE
     Route: 065
     Dates: end: 2017
  34. PANTOPRAZOLE [Suspect]
     Active Substance: PANTOPRAZOLE
     Indication: DYSPEPSIA
     Route: 065
     Dates: end: 2017
  35. SENSIPAR [Concomitant]
     Active Substance: CINACALCET HYDROCHLORIDE
  36. CALCIUM ACET [Concomitant]

REACTIONS (4)
  - End stage renal disease [Not Recovered/Not Resolved]
  - Renal failure [Unknown]
  - Chronic kidney disease [Not Recovered/Not Resolved]
  - Acute kidney injury [Not Recovered/Not Resolved]

NARRATIVE: CASE EVENT DATE: 2010
